FAERS Safety Report 16333316 (Version 2)
Quarter: 2019Q3

REPORT INFORMATION
  Report Type: Spontaneous
  Country: DE (occurrence: DE)
  Receive Date: 20190520
  Receipt Date: 20190703
  Transmission Date: 20191004
  Serious: Yes (Death, Hospitalization)
  Sender: FDA-Public Use
  Company Number: PHHY2019DE111580

PATIENT
  Age: 15 Year
  Sex: Male

DRUGS (5)
  1. REVOLADE [Suspect]
     Active Substance: ELTROMBOPAG
     Dosage: 50 MG, QD
     Route: 065
  2. METHYLPREDNISOLONE. [Concomitant]
     Active Substance: METHYLPREDNISOLONE
     Indication: THROMBOCYTOPENIA
     Dosage: UNK
     Route: 065
  3. REVOLADE [Suspect]
     Active Substance: ELTROMBOPAG
     Indication: IMMUNE THROMBOCYTOPENIC PURPURA
     Dosage: 25 MG, QD
     Route: 065
  4. REVOLADE [Suspect]
     Active Substance: ELTROMBOPAG
     Dosage: 75 MG, UNK
     Route: 065
  5. DEXAMETHASONE. [Concomitant]
     Active Substance: DEXAMETHASONE
     Indication: THROMBOCYTOPENIA
     Dosage: 0.3 MG/KG, QD
     Route: 065

REACTIONS (11)
  - Brain herniation [Unknown]
  - Platelet count decreased [Unknown]
  - Constipation [Unknown]
  - Cerebral haemorrhage [Fatal]
  - Epistaxis [Recovered/Resolved]
  - Skin haemorrhage [Recovered/Resolved]
  - Pupil fixed [Fatal]
  - Somnolence [Fatal]
  - Platelet count increased [Unknown]
  - Vomiting [Fatal]
  - Mucosal haemorrhage [Recovered/Resolved]
